FAERS Safety Report 19013207 (Version 1)
Quarter: 2021Q1

REPORT INFORMATION
  Report Type: Spontaneous
  Country: US (occurrence: US)
  Receive Date: 20210315
  Receipt Date: 20210315
  Transmission Date: 20210420
  Serious: Yes (Other)
  Sender: FDA-Public Use
  Company Number: US-FRESENIUS KABI-FK202102489

PATIENT
  Age: 31 Year
  Sex: Female

DRUGS (5)
  1. THIOCTIC ACID [Suspect]
     Active Substance: .ALPHA.-LIPOIC ACID
     Indication: WEIGHT DECREASED
     Route: 065
  2. VITAMIN B COMPLEX [Suspect]
     Active Substance: CYANOCOBALAMIN\DEXPANTHENOL\NIACINAMIDE\PYRIDOXINE HYDROCHLORIDE\RIBOFLAVIN 5^-PHOSPHATE SODIUM\THIAMINE HYDROCHLORIDE\VITAMIN B COMPLEX
     Indication: WEIGHT DECREASED
     Route: 065
  3. GLUTATHIONE [Suspect]
     Active Substance: GLUTATHIONE
     Indication: WEIGHT DECREASED
     Route: 065
  4. NO DRUG NAME [Suspect]
     Active Substance: UNSPECIFIED INGREDIENT
     Indication: WEIGHT DECREASED
     Route: 065
  5. MAGNESIUM SULFATE (MANUFACTURER UNKNOWN) [Suspect]
     Active Substance: MAGNESIUM SULFATE
     Indication: WEIGHT DECREASED
     Route: 065

REACTIONS (4)
  - Headache [Recovered/Resolved]
  - Disseminated intravascular coagulation [Recovered/Resolved]
  - Abdominal pain [Recovered/Resolved]
  - Diarrhoea [Recovered/Resolved]
